FAERS Safety Report 16055694 (Version 1)
Quarter: 2019Q1

REPORT INFORMATION
  Report Type: Spontaneous
  Country: US (occurrence: US)
  Receive Date: 20190311
  Receipt Date: 20190311
  Transmission Date: 20190418
  Serious: No
  Sender: FDA-Public Use
  Company Number: US-B.I. PHARMACEUTICALS,INC./RIDGEFIELD-2019-BI-009490

PATIENT
  Sex: Male

DRUGS (1)
  1. SPIRIVA RESPIMAT [Suspect]
     Active Substance: TIOTROPIUM BROMIDE
     Indication: TRAUMATIC LUNG INJURY
     Dosage: 2 INHALATIONS ONCE A DAY;  STRENGTH: 1.25 MCG; FORM: INHALATION SPRAY? ACTION TAKEN : NOT REPORTED
     Route: 055
     Dates: start: 2018

REACTIONS (1)
  - Off label use [Unknown]
